FAERS Safety Report 17442279 (Version 2)
Quarter: 2020Q2

REPORT INFORMATION
  Report Type: Report from Study
  Country: CA (occurrence: CA)
  Receive Date: 20200220
  Receipt Date: 20200401
  Transmission Date: 20200713
  Serious: Yes (Death, Hospitalization, Other)
  Sender: FDA-Public Use
  Company Number: CA-ACTELION-A-US2019-185850

PATIENT
  Sex: Female

DRUGS (4)
  1. ADCIRCA [Concomitant]
     Active Substance: TADALAFIL
  2. CARIPUL [Suspect]
     Active Substance: EPOPROSTENOL
     Indication: PULMONARY ARTERIAL HYPERTENSION
     Dosage: 30000 NG/ML
     Route: 042
     Dates: start: 20180814
  3. VOLIBRIS [Concomitant]
     Active Substance: AMBRISENTAN
     Dosage: 5 MG, QD
  4. APO-FENO-MICRO [Concomitant]
     Active Substance: FENOFIBRATE

REACTIONS (3)
  - Hospitalisation [Unknown]
  - Pancytopenia [Unknown]
  - Death [Fatal]
